FAERS Safety Report 6565864-4 (Version None)
Quarter: 2010Q1

REPORT INFORMATION
  Report Type: 
  Country: None (occurrence: None)
  Receive Date: 20100126
  Receipt Date: 20100115
  Transmission Date: 20100710
  Serious: Yes (Hospitalization)
  Sender: FDA-Public Use
  Company Number: 2010SP003799

PATIENT
  Age: 46 Year
  Sex: Male
  Weight: 95 kg

DRUGS (6)
  1. TEMOZOLOMIDE [Suspect]
     Indication: GLIOBLASTOMA MULTIFORME
     Dosage: 330 MG;QD;IV
     Route: 042
     Dates: start: 20091027
  2. DOCUSATE SODIUM [Concomitant]
  3. LEVETIRACETAM [Concomitant]
  4. OMEPRAZOLE [Concomitant]
  5. ZOLPIDEM TARTRATE [Concomitant]
  6. ONDANSETRON [Concomitant]

REACTIONS (13)
  - ARTHRALGIA [None]
  - BACK PAIN [None]
  - BLOOD MAGNESIUM DECREASED [None]
  - DEHYDRATION [None]
  - DERMATITIS ALLERGIC [None]
  - DIARRHOEA [None]
  - DIZZINESS [None]
  - DYSPNOEA [None]
  - HYPOKALAEMIA [None]
  - HYPONATRAEMIA [None]
  - PAIN IN EXTREMITY [None]
  - PRODUCTIVE COUGH [None]
  - VOMITING [None]
